FAERS Safety Report 17263373 (Version 1)
Quarter: 2020Q1

REPORT INFORMATION
  Report Type: Spontaneous
  Country: US (occurrence: US)
  Receive Date: 20200113
  Receipt Date: 20200113
  Transmission Date: 20200409
  Serious: Yes (Other)
  Sender: FDA-Public Use
  Company Number: US-BOIRON INC.-2019BOR00158

PATIENT
  Age: 32 Year
  Sex: Male
  Weight: 65.76 kg

DRUGS (2)
  1. ARNICARE [Suspect]
     Active Substance: HOMEOPATHICS
     Indication: PROMOTION OF WOUND HEALING
  2. ARNICARE [Suspect]
     Active Substance: HOMEOPATHICS
     Indication: BACK INJURY
     Dosage: A ^TINY BIT,^ ONCE
     Route: 061
     Dates: start: 20191223, end: 20191223

REACTIONS (10)
  - Burns second degree [Recovering/Resolving]
  - Scab [Not Recovered/Not Resolved]
  - Pain [Recovering/Resolving]
  - Application site burn [Recovered/Resolved]
  - Blister [Recovering/Resolving]
  - Skin burning sensation [Recovering/Resolving]
  - Skin exfoliation [Recovering/Resolving]
  - Scar [Unknown]
  - Burns third degree [Recovering/Resolving]
  - Urticaria [Recovering/Resolving]

NARRATIVE: CASE EVENT DATE: 20191223
